FAERS Safety Report 9592447 (Version 1)
Quarter: 2013Q4

REPORT INFORMATION
  Report Type: Spontaneous
  Country: US (occurrence: None)
  Receive Date: 20131004
  Receipt Date: 20131004
  Transmission Date: 20140711
  Serious: Yes (Life-Threatening, Hospitalization, Disabling, Other)
  Sender: FDA-Public Use
  Company Number: None

PATIENT
  Age: 46 Year
  Sex: Female
  Weight: 63.5 kg

DRUGS (2)
  1. TRIAMCINOLONE [Suspect]
     Indication: BACK PAIN
     Dates: start: 20130906
  2. ISOVUE [Suspect]
     Indication: BACK PAIN
     Dates: start: 20120906

REACTIONS (17)
  - Pyrexia [None]
  - Rash [None]
  - Headache [None]
  - Dysarthria [None]
  - Cellulitis [None]
  - Laryngitis [None]
  - Sinusitis [None]
  - Bronchitis [None]
  - Dyspepsia [None]
  - Depression [None]
  - Bacterial infection [None]
  - Herpes zoster [None]
  - Contusion [None]
  - Product quality issue [None]
  - Visual impairment [None]
  - Beta haemolytic streptococcal infection [None]
  - Infectious mononucleosis [None]
